FAERS Safety Report 17762241 (Version 2)
Quarter: 2020Q3

REPORT INFORMATION
  Report Type: Spontaneous
  Country: US (occurrence: US)
  Receive Date: 20200508
  Receipt Date: 20200713
  Transmission Date: 20201102
  Serious: Yes (Other)
  Sender: FDA-Public Use
  Company Number: US-NOVOPROD-726874

PATIENT
  Age: 54 Year
  Sex: Female

DRUGS (1)
  1. TRESIBA [Suspect]
     Active Substance: INSULIN DEGLUDEC
     Indication: TYPE 1 DIABETES MELLITUS
     Dosage: UNK
     Route: 058
     Dates: start: 2019

REACTIONS (3)
  - Diabetic ketoacidosis [Recovered/Resolved]
  - Blood glucose increased [Unknown]
  - Device failure [Unknown]

NARRATIVE: CASE EVENT DATE: 202004
